FAERS Safety Report 5671700-0 (Version None)
Quarter: 2008Q1

REPORT INFORMATION
  Report Type: 
  Country: None (occurrence: None)
  Receive Date: 20080314
  Receipt Date: 20080305
  Transmission Date: 20080703
  Serious: Yes (Hospitalization)
  Sender: FDA-Public Use
  Company Number: 163-21880-08030267

PATIENT
  Age: 67 Year
  Sex: Male
  Weight: 79.3 kg

DRUGS (8)
  1. REVLIMID [Suspect]
     Indication: CHRONIC LYMPHOCYTIC LEUKAEMIA
     Dosage: 2.5 MG, ONCE DAILY, ORAL
     Route: 048
     Dates: start: 20080303, end: 20080304
  2. ASPIRIN [Concomitant]
  3. MULTIVITAMIN [Concomitant]
  4. SAW PALMETTO (SERENOA REPENS) [Concomitant]
  5. ZOCOR [Concomitant]
  6. POTASSIUM CHLORIDE [Concomitant]
  7. FE SULFATE (FERROUS SULFATE) [Concomitant]
  8. NAPROXEN [Concomitant]

REACTIONS (3)
  - CONVULSION [None]
  - TRANSIENT ISCHAEMIC ATTACK [None]
  - UNRESPONSIVE TO STIMULI [None]
